FAERS Safety Report 8840666 (Version 1)
Quarter: 2012Q4

REPORT INFORMATION
  Report Type: 
  Country: NL (occurrence: NL)
  Receive Date: 20121015
  Receipt Date: 20121015
  Transmission Date: 20130627
  Serious: Yes (Other)
  Sender: FDA-Public Use
  Company Number: PHHY2012NL090665

PATIENT
  Age: 63 Year
  Sex: Male
  Weight: 71 kg

DRUGS (2)
  1. DICLOFENAC [Suspect]
     Indication: NECK PAIN
     Dosage: 1 DF, TID
     Dates: start: 201112
  2. DICLOFENAC [Suspect]
     Dosage: 1 DF, QD
     Dates: end: 20120617

REACTIONS (8)
  - Diabetes mellitus [Recovered/Resolved with Sequelae]
  - Hepatic steatosis [Recovered/Resolved with Sequelae]
  - Hypertension [Recovered/Resolved with Sequelae]
  - Renal failure [Recovered/Resolved with Sequelae]
  - Renal disorder [Recovered/Resolved with Sequelae]
  - Chest pain [Recovered/Resolved with Sequelae]
  - Dyspnoea [Recovered/Resolved with Sequelae]
  - Hearing impaired [Recovered/Resolved with Sequelae]
